FAERS Safety Report 25389440 (Version 1)
Quarter: 2025Q2

REPORT INFORMATION
  Report Type: Spontaneous
  Country: US (occurrence: US)
  Receive Date: 20250603
  Receipt Date: 20250603
  Transmission Date: 20250717
  Serious: Yes (Death)
  Sender: NOVARTIS
  Company Number: US-002147023-NVSC2025US088156

PATIENT
  Age: 0 Year
  Sex: Female
  Weight: 9 kg

DRUGS (1)
  1. KYMRIAH [Suspect]
     Active Substance: TISAGENLECLEUCEL
     Indication: Acute lymphocytic leukaemia
     Route: 042
     Dates: start: 20250311, end: 20250311

REACTIONS (1)
  - Death [Fatal]

NARRATIVE: CASE EVENT DATE: 20250525
